FAERS Safety Report 10244958 (Version 1)
Quarter: 2014Q2

REPORT INFORMATION
  Report Type: Spontaneous
  Country: US (occurrence: US)
  Receive Date: 20140618
  Receipt Date: 20140618
  Transmission Date: 20141212
  Serious: No
  Sender: FDA-Public Use
  Company Number: US-GALDERMA-US14000885

PATIENT
  Age: 56 Year
  Sex: Female

DRUGS (7)
  1. MIRVASO (BRIMONIDINE) TOPICAL GEL, 0.33% [Suspect]
     Indication: ROSACEA
     Dosage: 0.33%
     Route: 061
     Dates: start: 20140216, end: 20140223
  2. FINACEA (AZELAIC ACID) [Concomitant]
     Indication: ROSACEA
     Route: 061
     Dates: start: 2004
  3. CITRACAL D [Concomitant]
     Indication: SUPPLEMENTATION THERAPY
  4. MULTIVITAMIN [Concomitant]
  5. FLAX SEED OIL [Concomitant]
  6. GLUCOSAMINE [Concomitant]
  7. ACIDOPHILUS [Concomitant]

REACTIONS (5)
  - Pruritus [Recovered/Resolved]
  - Skin irritation [Recovered/Resolved]
  - Acne [Recovered/Resolved]
  - Erythema [Recovered/Resolved]
  - Flushing [Recovered/Resolved]
